FAERS Safety Report 22802828 (Version 2)
Quarter: 2023Q4

REPORT INFORMATION
  Report Type: Spontaneous
  Country: US (occurrence: US)
  Receive Date: 20230809
  Receipt Date: 20231219
  Transmission Date: 20240110
  Serious: No
  Sender: FDA-Public Use
  Company Number: US-SA-SAC20230808001129

PATIENT
  Age: 67 Year
  Sex: Male

DRUGS (2)
  1. JEVTANA [Suspect]
     Active Substance: CABAZITAXEL
     Indication: Prostate cancer
     Dosage: 60MG/1.5ML Q3W
     Route: 041
     Dates: start: 20230718
  2. JEVTANA [Suspect]
     Active Substance: CABAZITAXEL
     Dosage: 60MG/1.5ML KIT,Q3W
     Route: 041
     Dates: start: 20230711

REACTIONS (2)
  - Weight increased [Unknown]
  - Weight decreased [Unknown]
